FAERS Safety Report 20977407 (Version 2)
Quarter: 2022Q2

REPORT INFORMATION
  Report Type: Other
  Country: JP (occurrence: JP)
  Receive Date: 20220617
  Receipt Date: 20220624
  Transmission Date: 20220720
  Serious: Yes (Death)
  Sender: FDA-Public Use
  Company Number: JP-CHUGAI-2022022520

PATIENT
  Age: 42 Year
  Sex: Male

DRUGS (4)
  1. ACTEMRA [Suspect]
     Active Substance: TOCILIZUMAB
     Indication: Castleman^s disease
     Route: 065
  2. RITUXIMAB [Concomitant]
     Active Substance: RITUXIMAB
     Indication: Castleman^s disease
     Dosage: 375 MILLIGRAM/SQ. METER, ONCE/WEEK
     Route: 041
  3. PREDNISOLONE [Concomitant]
     Active Substance: PREDNISOLONE
     Indication: Castleman^s disease
     Dosage: 70MG/DAY
     Route: 065
  4. GLOBULIN [Concomitant]
     Dosage: UNK
     Route: 042

REACTIONS (2)
  - Bacteraemia [Fatal]
  - Off label use [Unknown]
